FAERS Safety Report 9191261 (Version 3)
Quarter: 2013Q2

REPORT INFORMATION
  Report Type: Report from Study
  Country: PL (occurrence: PL)
  Receive Date: 20130326
  Receipt Date: 20130528
  Transmission Date: 20140414
  Serious: Yes (Death, Life-Threatening, Hospitalization, Other)
  Sender: FDA-Public Use
  Company Number: PL-VERTEX PHARMACEUTICALS INC.-2012-026779

PATIENT
  Age: 56 Year
  Sex: Male
  Weight: 74 kg

DRUGS (9)
  1. VX-222 [Suspect]
     Indication: HEPATITIS C
     Dosage: 400 MG, BID
     Route: 048
     Dates: start: 20121211, end: 20121227
  2. VX-950 (TELAPREVIR) [Suspect]
     Indication: HEPATITIS C
     Dosage: 1125 MG, UNK
     Route: 048
     Dates: start: 20121211, end: 20121227
  3. Z-PEGYLATED INTERFERON-2A [Suspect]
     Indication: HEPATITIS C
     Dosage: 180 ?G, UNK
     Route: 058
     Dates: start: 20121211, end: 20121225
  4. Z-RIBAVIRIN [Suspect]
     Indication: HEPATITIS C
     Dosage: 1000 MG, QD
     Route: 048
     Dates: start: 20121211, end: 20121227
  5. SODIUM BICARBONATE [Concomitant]
     Indication: SEPSIS
     Dosage: 40 MEQ, UNK
     Dates: start: 20121228, end: 20121230
  6. HELICID [Concomitant]
     Indication: SEPSIS
     Dosage: 40 MG, UNK
     Dates: start: 20121228, end: 20121230
  7. FUROSEMID [Concomitant]
     Indication: SEPSIS
     Dosage: 20 UNK, UNK
     Dates: start: 20121228, end: 20121230
  8. CLEXANE [Concomitant]
     Indication: SEPSIS
     Dosage: 40 MG, UNK
     Dates: start: 20121228, end: 20121230
  9. SULFACETAMIDUM H-E-C [Concomitant]
     Indication: SEPSIS
     Dosage: UNK
     Route: 042
     Dates: start: 20121228, end: 20121230

REACTIONS (1)
  - Septic shock [Fatal]
